FAERS Safety Report 14748540 (Version 1)
Quarter: 2018Q2

REPORT INFORMATION
  Report Type: Spontaneous
  Country: US (occurrence: US)
  Receive Date: 20180411
  Receipt Date: 20180411
  Transmission Date: 20180711
  Serious: No
  Sender: FDA-Public Use
  Company Number: US-AMGEN-USASP2017163031

PATIENT
  Age: 76 Year
  Sex: Female

DRUGS (5)
  1. VITAMIN D [Concomitant]
     Active Substance: CHOLECALCIFEROL
  2. VITAMINS [Concomitant]
     Active Substance: VITAMINS
  3. ELIQUIS [Concomitant]
     Active Substance: APIXABAN
  4. CALCIUM [Concomitant]
     Active Substance: CALCIUM
  5. PROLIA [Suspect]
     Active Substance: DENOSUMAB
     Indication: OSTEOPOROSIS POSTMENOPAUSAL
     Dosage: UNK, UNK
     Route: 065
     Dates: start: 20170504, end: 20170504

REACTIONS (11)
  - Dyspnoea [Recovered/Resolved]
  - Pruritus [Recovered/Resolved]
  - Limb discomfort [Unknown]
  - Hyperhidrosis [Recovered/Resolved]
  - Dental caries [Not Recovered/Not Resolved]
  - Influenza [Recovered/Resolved]
  - Tooth infection [Not Recovered/Not Resolved]
  - Ear discomfort [Not Recovered/Not Resolved]
  - Sleep disorder due to a general medical condition [Recovered/Resolved]
  - Nasopharyngitis [Recovered/Resolved]
  - Gait disturbance [Recovered/Resolved]

NARRATIVE: CASE EVENT DATE: 2017
